FAERS Safety Report 14583570 (Version 1)
Quarter: 2018Q1

REPORT INFORMATION
  Report Type: Spontaneous
  Country: DE (occurrence: DE)
  Receive Date: 20180228
  Receipt Date: 20180228
  Transmission Date: 20180509
  Serious: Yes (Other)
  Sender: FDA-Public Use
  Company Number: DE-OTSUKA-DJ20106686

PATIENT

DRUGS (4)
  1. TRUXAL [Suspect]
     Active Substance: CHLORPROTHIXENE
     Indication: PERSECUTORY DELUSION
     Route: 065
  2. ABILIFY [Suspect]
     Active Substance: ARIPIPRAZOLE
     Indication: PERSECUTORY DELUSION
     Route: 048
  3. ABILIFY [Suspect]
     Active Substance: ARIPIPRAZOLE
     Indication: ANXIETY
  4. TRUXAL [Suspect]
     Active Substance: CHLORPROTHIXENE
     Indication: ANXIETY

REACTIONS (2)
  - Eye disorder [Unknown]
  - Seizure [Unknown]

NARRATIVE: CASE EVENT DATE: 20101114
